FAERS Safety Report 7395186-3 (Version None)
Quarter: 2011Q2

REPORT INFORMATION
  Report Type: 
  Country: None (occurrence: None)
  Receive Date: 20110405
  Receipt Date: 20110329
  Transmission Date: 20111010
  Serious: Yes (Hospitalization, Other)
  Sender: FDA-Public Use
  Company Number: NL-GENZYME-CLOF-1001394

PATIENT
  Sex: Male
  Weight: 120 kg

DRUGS (3)
  1. CYTOSINE ARABINOSIDE [Suspect]
     Indication: ACUTE LEUKAEMIA
     Dosage: 250 MG, QD
     Route: 042
     Dates: start: 20101021, end: 20101030
  2. IDARUBICIN HCL [Suspect]
     Indication: ACUTE LEUKAEMIA
     Dosage: 25 MG, QOD
     Route: 042
     Dates: start: 20101021, end: 20101025
  3. EVOLTRA [Suspect]
     Indication: ACUTE LEUKAEMIA
     Dosage: 25 MG, QOD
     Route: 042
     Dates: start: 20101022, end: 20101030

REACTIONS (4)
  - LIVER ABSCESS [None]
  - RENAL ABSCESS [None]
  - SPLENIC ABSCESS [None]
  - PYREXIA [None]
